FAERS Safety Report 5880946-8 (Version None)
Quarter: 2008Q3

REPORT INFORMATION
  Report Type: 
  Country: None (occurrence: None)
  Receive Date: 20080910
  Receipt Date: 20080825
  Transmission Date: 20090109
  Serious: Yes (Other)
  Sender: FDA-Public Use
  Company Number: SP-2006-002955

PATIENT
  Age: 73 Year
  Sex: Female

DRUGS (4)
  1. OLMESARTAN MEDOXOMIL [Suspect]
     Indication: HYPERTENSION
     Dosage: 20 MG (20 MG,1IN 1 D), PER ORAL
     Route: 048
     Dates: start: 20060208, end: 20060301
  2. MIRTAZAPINE [Concomitant]
  3. OMEPRAZOLE [Concomitant]
  4. PROPANOLOL (PROPRANOLOL) (PROPRANOLOL) [Concomitant]

REACTIONS (3)
  - ABDOMINAL DISCOMFORT [None]
  - DYSPNOEA [None]
  - MYALGIA [None]
